FAERS Safety Report 5237410-9 (Version None)
Quarter: 2007Q1

REPORT INFORMATION
  Report Type: 
  Country: None (occurrence: None)
  Receive Date: 20070213
  Receipt Date: 20070131
  Transmission Date: 20070707
  Serious: Yes (Other)
  Sender: FDA-Public Use
  Company Number: FR-PFIZER INC-2006148980

PATIENT
  Sex: Female

DRUGS (2)
  1. GENOTONORM [Suspect]
     Indication: OFF LABEL USE
  2. GENOTONORM [Suspect]
     Indication: OVERWEIGHT

REACTIONS (1)
  - HERPES ZOSTER [None]
